FAERS Safety Report 17556467 (Version 2)
Quarter: 2020Q3

REPORT INFORMATION
  Report Type: Spontaneous
  Country: US (occurrence: US)
  Receive Date: 20200318
  Receipt Date: 20200805
  Transmission Date: 20201102
  Serious: Yes (Other)
  Sender: FDA-Public Use
  Company Number: US-PFIZER INC-2020117094

PATIENT
  Age: 77 Year
  Sex: Female

DRUGS (1)
  1. XELJANZ XR [Suspect]
     Active Substance: TOFACITINIB CITRATE
     Dosage: 11 MG, UNK
     Dates: start: 202002

REACTIONS (7)
  - Cataract [Unknown]
  - Diarrhoea [Unknown]
  - Pain [Unknown]
  - Musculoskeletal stiffness [Unknown]
  - Feeling hot [Unknown]
  - Peripheral swelling [Unknown]
  - Gait inability [Unknown]
